FAERS Safety Report 18346476 (Version 1)
Quarter: 2020Q4

REPORT INFORMATION
  Report Type: Spontaneous
  Country: US (occurrence: US)
  Receive Date: 20201005
  Receipt Date: 20201005
  Transmission Date: 20210114
  Serious: Yes (Death, Other)
  Sender: FDA-Public Use
  Company Number: US-PFIZER INC-2020379861

PATIENT
  Age: 74 Year
  Sex: Male
  Weight: 74.84 kg

DRUGS (1)
  1. LORBRENA [Suspect]
     Active Substance: LORLATINIB
     Indication: NEOPLASM MALIGNANT
     Dosage: 100 MG, 1X/DAY
     Route: 048

REACTIONS (8)
  - Neoplasm progression [Fatal]
  - Vision blurred [Unknown]
  - Fall [Unknown]
  - Weight decreased [Unknown]
  - Dizziness [Unknown]
  - Cachexia [Unknown]
  - Diarrhoea [Unknown]
  - Orthostatic hypotension [Unknown]
